FAERS Safety Report 9829251 (Version 2)
Quarter: 2014Q1

REPORT INFORMATION
  Report Type: Spontaneous
  Country: US (occurrence: US)
  Receive Date: 20140120
  Receipt Date: 20140120
  Transmission Date: 20141002
  Serious: Yes (Hospitalization, Other)
  Sender: FDA-Public Use
  Company Number: US-MYLANLABS-2014S1000807

PATIENT
  Age: 79 Year
  Sex: Female

DRUGS (17)
  1. FUROSEMIDE TABLETS, USP [Suspect]
     Indication: JOINT SWELLING
     Route: 048
  2. FUROSEMIDE TABLETS, USP [Suspect]
     Indication: LOCAL SWELLING
     Route: 048
  3. LYRICA [Concomitant]
     Route: 048
  4. PRADAXA [Concomitant]
     Route: 048
  5. METOPROLOL SUCCINATE [Concomitant]
     Route: 048
  6. ENALAPRIL [Concomitant]
     Route: 048
  7. POTASSIUM CHLORIDE [Concomitant]
     Route: 048
  8. SULFAZINE [Concomitant]
     Route: 048
  9. PANTOPRAZOLE [Concomitant]
     Route: 048
  10. DIGOXIN [Concomitant]
     Route: 048
  11. ATORVASTATIN [Concomitant]
     Route: 048
  12. PREDNISONE [Concomitant]
     Route: 048
  13. ALLOPURINOL [Concomitant]
     Route: 048
  14. ADVAIR [Concomitant]
     Dosage: 100/50MCG
     Route: 055
  15. SPIRIVA [Concomitant]
     Route: 055
  16. LEVEMIR [Concomitant]
  17. NOVOLOG [Concomitant]

REACTIONS (1)
  - Lung neoplasm malignant [Not Recovered/Not Resolved]
